FAERS Safety Report 6924253-0 (Version None)
Quarter: 2010Q3

REPORT INFORMATION
  Report Type: 
  Country: None (occurrence: None)
  Receive Date: 20100811
  Receipt Date: 20100811
  Transmission Date: 20110219
  Serious: No
  Sender: FDA-Public Use
  Company Number: None

PATIENT
  Age: 78 Year
  Sex: Male
  Weight: 36.74 kg

DRUGS (1)
  1. REGADENOSON [Suspect]
     Indication: CARDIAC STRESS TEST
     Dosage: 0.4 MG ONCE IV
     Route: 042
     Dates: start: 20091007, end: 20091007

REACTIONS (3)
  - CARDIAC ARREST [None]
  - PALPITATIONS [None]
  - SYNCOPE [None]
